FAERS Safety Report 5940402-5 (Version None)
Quarter: 2008Q4

REPORT INFORMATION
  Report Type: 
  Country: None (occurrence: None)
  Receive Date: 20081030
  Receipt Date: 20081015
  Transmission Date: 20090506
  Serious: Yes (Hospitalization)
  Sender: FDA-Public Use
  Company Number: 2008S1018898

PATIENT
  Age: 20 Year
  Sex: Male

DRUGS (3)
  1. OMEPRAZOLE [Suspect]
     Indication: DRUG USE FOR UNKNOWN INDICATION
  2. ANTIBIOTICS [Concomitant]
  3. AZITHROMYCIN [Concomitant]

REACTIONS (1)
  - PSEUDOMEMBRANOUS COLITIS [None]
